FAERS Safety Report 4381864-7 (Version None)
Quarter: 2004Q2

REPORT INFORMATION
  Report Type: 
  Country: None (occurrence: None)
  Receive Date: 20040610
  Receipt Date: 20040211
  Transmission Date: 20050107
  Serious: No
  Sender: FDA-Public Use
  Company Number: A03200400440

PATIENT
  Age: 42 Year
  Sex: Female
  Weight: 72.5755 kg

DRUGS (7)
  1. ELOXATIN [Suspect]
     Indication: COLON CANCER
     Dosage: 165 MG Q2W - INTRAVENOUS NOS
     Route: 042
     Dates: start: 20040211, end: 20040211
  2. DOLASETRON [Concomitant]
  3. DEXAMETHASONE [Concomitant]
  4. APREPITANT [Concomitant]
  5. MAGNESIUM [Concomitant]
  6. CALCIUM GLUCONATE [Concomitant]
  7. LEUCOVORIN [Concomitant]

REACTIONS (5)
  - LACRIMATION INCREASED [None]
  - NASAL CONGESTION [None]
  - PRURITUS [None]
  - RASH [None]
  - RHINORRHOEA [None]
